FAERS Safety Report 5487534-6 (Version None)
Quarter: 2007Q4

REPORT INFORMATION
  Report Type: 
  Country: None (occurrence: None)
  Receive Date: 20071016
  Receipt Date: 20071006
  Transmission Date: 20080405
  Serious: Yes (Other)
  Sender: FDA-Public Use
  Company Number: US-PFIZER INC-2007084879

PATIENT
  Sex: Female
  Weight: 89.8 kg

DRUGS (3)
  1. EXUBERA [Suspect]
     Indication: TYPE 2 DIABETES MELLITUS
     Route: 055
  2. ALL OTHER THERAPEUTIC PRODUCTS [Concomitant]
  3. DIOVAN [Concomitant]
     Indication: HYPERTENSION

REACTIONS (1)
  - CHEST DISCOMFORT [None]
